FAERS Safety Report 5228971-4 (Version None)
Quarter: 2007Q1

REPORT INFORMATION
  Report Type: 
  Country: None (occurrence: None)
  Receive Date: 20061201
  Receipt Date: 20060905
  Transmission Date: 20070707
  Serious: No
  Sender: FDA-Public Use
  Company Number: US200605006659

PATIENT
  Age: 26 Year
  Sex: Male
  Weight: 73.5 kg

DRUGS (4)
  1. CYMBALTA [Suspect]
     Indication: ABNORMAL BEHAVIOUR
     Dosage: 30 MG, EACH EVENING
     Dates: start: 20050601
  2. WELLBUTRIN [Concomitant]
  3. ANTIBIOTICS [Concomitant]
  4. POTASSIUM (POTASSIUM) [Concomitant]

REACTIONS (1)
  - AGGRESSION [None]
